FAERS Safety Report 21306097 (Version 3)
Quarter: 2023Q2

REPORT INFORMATION
  Report Type: Spontaneous
  Country: ES (occurrence: ES)
  Receive Date: 20220908
  Receipt Date: 20230405
  Transmission Date: 20230721
  Serious: Yes (Other)
  Sender: FDA-Public Use
  Company Number: ES-TAKEDA-2022TUS062147

PATIENT
  Age: 44 Year
  Sex: Male

DRUGS (4)
  1. ANAGRELIDE [Suspect]
     Active Substance: ANAGRELIDE
     Indication: Essential thrombocythaemia
     Dosage: UNK
     Route: 065
  2. ASPIRIN [Concomitant]
     Active Substance: ASPIRIN
     Dosage: UNK
     Route: 065
  3. HYDROXYUREA [Concomitant]
     Active Substance: HYDROXYUREA
     Dosage: UNK
     Route: 065
  4. HYDROXYUREA [Concomitant]
     Active Substance: HYDROXYUREA
     Dosage: UNK
     Route: 065

REACTIONS (3)
  - Adverse event [Unknown]
  - Withdrawal syndrome [Unknown]
  - Cerebrovascular accident [Unknown]
